FAERS Safety Report 18285443 (Version 1)
Quarter: 2020Q3

REPORT INFORMATION
  Report Type: Report from Study
  Country: US (occurrence: US)
  Receive Date: 20200918
  Receipt Date: 20200918
  Transmission Date: 20201103
  Serious: Yes (Hospitalization)
  Sender: FDA-Public Use
  Company Number: US-GILEAD-2020-0494739

PATIENT
  Age: 18 Year
  Sex: Female

DRUGS (35)
  1. METFORMIN [Concomitant]
     Active Substance: METFORMIN HYDROCHLORIDE
  2. NIFEDIPINE. [Concomitant]
     Active Substance: NIFEDIPINE
  3. OFLOXACIN. [Concomitant]
     Active Substance: OFLOXACIN
  4. CYPROHEPATADINE [Concomitant]
     Active Substance: CYPROHEPTADINE HYDROCHLORIDE
  5. PULMICORT TURBUHALER [Concomitant]
     Active Substance: BUDESONIDE
  6. CALCITROL [CALCITRIOL] [Concomitant]
     Active Substance: CALCITRIOL
  7. AZTREONAM LYSINE [Suspect]
     Active Substance: AZTREONAM LYSINE
     Indication: CYSTIC FIBROSIS LUNG
     Dosage: 75 MG, TID, FOR 28 DAYS
     Route: 055
     Dates: start: 20170913
  8. PREDNISONE. [Concomitant]
     Active Substance: PREDNISONE
  9. COENZYME Q10 [Concomitant]
     Active Substance: DIETARY SUPPLEMENT\UBIDECARENONE
  10. FOSAMAX [Concomitant]
     Active Substance: ALENDRONATE SODIUM
  11. NYSTATIN. [Concomitant]
     Active Substance: NYSTATIN
  12. ALBUTEROL [SALBUTAMOL SULFATE] [Concomitant]
     Active Substance: ALBUTEROL SULFATE
  13. TOBRAMYCIN. [Concomitant]
     Active Substance: TOBRAMYCIN
  14. PRILOSEC [Concomitant]
     Active Substance: OMEPRAZOLE MAGNESIUM
  15. ALPHA LIPOIC ACID [Concomitant]
     Active Substance: .ALPHA.-LIPOIC ACID
  16. STELARA [Concomitant]
     Active Substance: USTEKINUMAB
  17. HYDROCORTISONE. [Concomitant]
     Active Substance: HYDROCORTISONE
  18. PROCARDIA [Concomitant]
     Active Substance: NIFEDIPINE
  19. ZYRTEC [Concomitant]
     Active Substance: CETIRIZINE HYDROCHLORIDE
  20. ZANTAC [Concomitant]
     Active Substance: RANITIDINE HYDROCHLORIDE
  21. GAMMAGARD [Concomitant]
     Active Substance: HUMAN IMMUNOGLOBULIN G
  22. HYDROCHLOROTHIAZIDE. [Concomitant]
     Active Substance: HYDROCHLOROTHIAZIDE
  23. SIROLIMUS. [Concomitant]
     Active Substance: SIROLIMUS
  24. BUDESONIDE. [Concomitant]
     Active Substance: BUDESONIDE
  25. LEVOCARNITIN [Concomitant]
  26. FLONASE [Concomitant]
     Active Substance: FLUTICASONE PROPIONATE
  27. CREATINE [Concomitant]
     Active Substance: CREATINE
  28. VITAMIN B [Concomitant]
     Active Substance: VITAMIN B
  29. OMEPRAZOLE. [Concomitant]
     Active Substance: OMEPRAZOLE
  30. SWEEN [Concomitant]
  31. CALCIUM [Concomitant]
     Active Substance: CALCIUM
  32. NORDITROPIN [Concomitant]
     Active Substance: SOMATROPIN
  33. PULMOZYME [Concomitant]
     Active Substance: DORNASE ALFA
  34. ORENCIA [Concomitant]
     Active Substance: ABATACEPT
  35. SODIUM CHLORIDE. [Concomitant]
     Active Substance: SODIUM CHLORIDE

REACTIONS (2)
  - Biopsy lung [Unknown]
  - Parotitis [Recovering/Resolving]

NARRATIVE: CASE EVENT DATE: 20200904
